FAERS Safety Report 6899256-5 (Version None)
Quarter: 2010Q3

REPORT INFORMATION
  Report Type: 
  Country: None (occurrence: None)
  Receive Date: 20100802
  Receipt Date: 20080304
  Transmission Date: 20110219
  Serious: Yes (Other)
  Sender: FDA-Public Use
  Company Number: US-PFIZER INC-2008001038

PATIENT
  Sex: Male

DRUGS (2)
  1. LYRICA [Suspect]
  2. DRUGS FOR TREATMENT OF TUBERCULOSIS [Suspect]

REACTIONS (4)
  - DRUG INEFFECTIVE [None]
  - MALAISE [None]
  - PAIN IN EXTREMITY [None]
  - PULMONARY OEDEMA [None]
